FAERS Safety Report 6834271-9 (Version None)
Quarter: 2010Q3

REPORT INFORMATION
  Report Type: 
  Country: None (occurrence: None)
  Receive Date: 20100712
  Receipt Date: 20070418
  Transmission Date: 20110219
  Serious: No
  Sender: FDA-Public Use
  Company Number: US-PFIZER INC-2007032198

PATIENT
  Sex: Male
  Weight: 113.63 kg

DRUGS (7)
  1. CHANTIX [Suspect]
     Indication: SMOKING CESSATION THERAPY
     Dates: start: 20070401, end: 20070418
  2. NITROGLYCERIN [Concomitant]
     Indication: CHEST PAIN
  3. WELLBUTRIN XL [Concomitant]
  4. TRILEPTAL [Concomitant]
  5. OTHER HYPNOTICS AND SEDATIVES [Concomitant]
  6. SEROQUEL [Concomitant]
  7. DRUG, UNSPECIFIED [Concomitant]

REACTIONS (3)
  - DIPLOPIA [None]
  - DIZZINESS [None]
  - VISION BLURRED [None]
